FAERS Safety Report 8010731-2 (Version None)
Quarter: 2011Q4

REPORT INFORMATION
  Report Type: 
  Country: None (occurrence: None)
  Receive Date: 20111228
  Receipt Date: 20111219
  Transmission Date: 20120403
  Serious: Yes (Hospitalization)
  Sender: FDA-Public Use
  Company Number: US-JNJFOC-20111209051

PATIENT
  Sex: Female
  Weight: 42 kg

DRUGS (10)
  1. MERCAPTOPURINE [Concomitant]
  2. CHOLECALCIFEROL [Concomitant]
  3. REMICADE [Suspect]
     Indication: INFLAMMATORY BOWEL DISEASE
     Route: 042
  4. NEXIUM [Concomitant]
  5. AMITRIPTYLINE [Concomitant]
  6. FOLIC ACID [Concomitant]
  7. ANTIBIOTICS [Concomitant]
     Indication: INFLAMMATORY BOWEL DISEASE
  8. TYLENOL W/ CODEINE [Concomitant]
  9. HUMIRA [Concomitant]
     Dates: start: 20110827
  10. ZOFRAN [Concomitant]

REACTIONS (1)
  - CROHN'S DISEASE [None]
